FAERS Safety Report 6006582-0 (Version None)
Quarter: 2008Q4

REPORT INFORMATION
  Report Type: 
  Country: None (occurrence: None)
  Receive Date: 20081217
  Receipt Date: 20081208
  Transmission Date: 20090506
  Serious: No
  Sender: FDA-Public Use
  Company Number: US-WYE-H06198508

PATIENT
  Sex: Female
  Weight: 70.82 kg

DRUGS (11)
  1. PRISTIQ [Suspect]
     Indication: DEPRESSION
     Route: 048
     Dates: start: 20080717, end: 20080724
  2. PRISTIQ [Suspect]
     Indication: ANXIETY
  3. ATIVAN [Concomitant]
  4. AMBIEN [Concomitant]
  5. CYANOCOBALAMIN [Concomitant]
     Dosage: UNKNOWN
  6. NORVASC [Concomitant]
  7. ASACOL [Concomitant]
  8. ATENOLOL [Concomitant]
  9. LIPITOR [Concomitant]
  10. COZAAR [Concomitant]
  11. VICODIN [Concomitant]

REACTIONS (2)
  - RASH [None]
  - SKIN IRRITATION [None]
